FAERS Safety Report 10415626 (Version 1)
Quarter: 2014Q3

REPORT INFORMATION
  Report Type: Spontaneous
  Country: US (occurrence: None)
  Receive Date: 20140827
  Receipt Date: 20140827
  Transmission Date: 20150326
  Serious: Yes (Life-Threatening)
  Sender: FDA-Public Use
  Company Number: None

PATIENT
  Age: 50 Year
  Sex: Female
  Weight: 85 kg

DRUGS (1)
  1. HEPARIN [Suspect]
     Active Substance: HEPARIN SODIUM
     Indication: ANTICOAGULANT THERAPY
     Dosage: 1250 UNITS/HR CONTINUOUS INTRAVENOUS
     Route: 042
     Dates: start: 20140728, end: 20140730

REACTIONS (1)
  - Heparin-induced thrombocytopenia [None]

NARRATIVE: CASE EVENT DATE: 20140730
